FAERS Safety Report 9851154 (Version 1)
Quarter: 2014Q1

REPORT INFORMATION
  Report Type: Spontaneous
  Country: GB (occurrence: GB)
  Receive Date: 20140128
  Receipt Date: 20140128
  Transmission Date: 20141002
  Serious: Yes (Other)
  Sender: FDA-Public Use
  Company Number: GB-B.I. PHARMACEUTICALS,INC./RIDGEFIELD-2014-BI-03410UK

PATIENT
  Age: 77 Year
  Sex: Female
  Weight: 76 kg

DRUGS (9)
  1. SPIRIVA [Suspect]
     Dates: start: 20130923
  2. AMITRIPTYLINE HYDROCHLORIDE [Concomitant]
     Dates: start: 20130923
  3. CLOPIDOGREL [Concomitant]
     Dates: start: 20130923
  4. LERCANIDIPINE HYDROCHLORIDE [Concomitant]
     Dates: start: 20130923
  5. LUMIGAN [Concomitant]
     Dates: start: 20131216
  6. PARACETAMOL [Concomitant]
     Dates: start: 20131021
  7. SALAMOL [Concomitant]
     Dates: start: 20130923
  8. SIMVASTATIN [Concomitant]
     Dates: start: 20130923
  9. VOLUMATIC [Concomitant]
     Dates: start: 20130425

REACTIONS (1)
  - Ageusia [Unknown]
